FAERS Safety Report 13176314 (Version 1)
Quarter: 2017Q1

REPORT INFORMATION
  Report Type: Spontaneous
  Country: BR (occurrence: BR)
  Receive Date: 20170201
  Receipt Date: 20170201
  Transmission Date: 20170428
  Serious: Yes (Other)
  Sender: FDA-Public Use
  Company Number: BR-BIOMARINAP-BR-2017-112600

PATIENT
  Sex: Male
  Weight: 22 kg

DRUGS (3)
  1. ALDURAZYME [Suspect]
     Active Substance: LARONIDASE
     Dosage: UNK, QW
     Route: 041
  2. ALDURAZYME [Suspect]
     Active Substance: LARONIDASE
     Indication: MUCOPOLYSACCHARIDOSIS I
     Dosage: UNK, QW
     Route: 041
     Dates: start: 200901, end: 20161221
  3. ALDURAZYME [Suspect]
     Active Substance: LARONIDASE
     Dosage: UNK, QW
     Route: 041
     Dates: start: 20170118

REACTIONS (5)
  - Malaise [Recovering/Resolving]
  - Faeces discoloured [Recovering/Resolving]
  - Food allergy [Recovered/Resolved]
  - Decreased appetite [Recovering/Resolving]
  - Hepatitis [Unknown]
